FAERS Safety Report 5675698-0 (Version None)
Quarter: 2008Q1

REPORT INFORMATION
  Report Type: 
  Country: None (occurrence: None)
  Receive Date: 20080321
  Receipt Date: 20080312
  Transmission Date: 20080703
  Serious: Yes (Hospitalization)
  Sender: FDA-Public Use
  Company Number: PHHO2005DE20557

PATIENT

DRUGS (3)
  1. TOBI [Suspect]
     Indication: LUNG INFECTION PSEUDOMONAL
     Dosage: 300 MG, BID
     Dates: start: 20041103, end: 20041129
  2. TOBI [Suspect]
     Dosage: 300 MG, BID
     Dates: start: 20050107, end: 20050121
  3. ELOBACT [Concomitant]
     Dosage: UNK, UNK
     Route: 048
     Dates: start: 20041210, end: 20041217

REACTIONS (2)
  - DRUG INEFFECTIVE [None]
  - PSEUDOMONAS INFECTION [None]
